FAERS Safety Report 5611640-6 (Version None)
Quarter: 2008Q1

REPORT INFORMATION
  Report Type: 
  Country: None (occurrence: None)
  Receive Date: 20080201
  Receipt Date: 20080121
  Transmission Date: 20080703
  Serious: Yes (Other)
  Sender: FDA-Public Use
  Company Number: JP-PFIZER INC-2008008140

PATIENT
  Age: 49 Year
  Sex: Male

DRUGS (1)
  1. ZITHROMAX [Suspect]
     Indication: SINUSITIS
     Dosage: DAILY DOSE:500MG
     Route: 048

REACTIONS (2)
  - DYSPNOEA [None]
  - URTICARIA [None]
